FAERS Safety Report 7876578-2 (Version None)
Quarter: 2011Q4

REPORT INFORMATION
  Report Type: 
  Country: None (occurrence: None)
  Receive Date: 20111031
  Receipt Date: 20111024
  Transmission Date: 20120403
  Serious: Yes (Other)
  Sender: FDA-Public Use
  Company Number: US-US-EMD SERONO, INC.-232541K09USA

PATIENT
  Sex: Female

DRUGS (1)
  1. REBIF [Suspect]
     Indication: MULTIPLE SCLEROSIS
     Route: 058
     Dates: start: 20050221, end: 20110501

REACTIONS (4)
  - LOSS OF CONSCIOUSNESS [None]
  - DEVICE DISLOCATION [None]
  - FALL [None]
  - CONVULSION [None]
